FAERS Safety Report 5988513-2 (Version None)
Quarter: 2008Q4

REPORT INFORMATION
  Report Type: 
  Country: None (occurrence: None)
  Receive Date: 20081208
  Receipt Date: 20081208
  Transmission Date: 20090506
  Serious: Yes (Death)
  Sender: FDA-Public Use
  Company Number: None

PATIENT
  Age: 34 Year
  Sex: Male
  Weight: 68.0396 kg

DRUGS (2)
  1. METHADONE HCL [Suspect]
     Indication: PAIN
     Dosage: 50 MG. DAILY PO
     Route: 048
     Dates: start: 20080404, end: 20080807
  2. CARISOPRODOL [Suspect]
     Indication: PAIN
     Dosage: 350 MG. 2 X DAILY PO
     Route: 048
     Dates: start: 20080605, end: 20080807

REACTIONS (2)
  - RESPIRATORY ARREST [None]
  - THERAPEUTIC AGENT TOXICITY [None]
